FAERS Safety Report 20150123 (Version 1)
Quarter: 2021Q4

REPORT INFORMATION
  Report Type: Other
  Country: ES (occurrence: ES)
  Receive Date: 20211206
  Receipt Date: 20211206
  Transmission Date: 20220304
  Serious: No
  Sender: FDA-Public Use
  Company Number: ES-TOLMAR, INC.-21ES030476

PATIENT

DRUGS (1)
  1. ELIGARD [Suspect]
     Active Substance: LEUPROLIDE ACETATE
     Indication: Product used for unknown indication
     Dosage: 45 MILLIGRAM

REACTIONS (4)
  - Product administration error [Unknown]
  - Underdose [Unknown]
  - Syringe issue [Unknown]
  - Device leakage [Unknown]
